FAERS Safety Report 6982923-2 (Version None)
Quarter: 2010Q3

REPORT INFORMATION
  Report Type: 
  Country: None (occurrence: None)
  Receive Date: 20100914
  Receipt Date: 20100511
  Transmission Date: 20110219
  Serious: Yes (Other)
  Sender: FDA-Public Use
  Company Number: US-PFIZER INC-2010037957

PATIENT
  Sex: Female
  Weight: 68.027 kg

DRUGS (5)
  1. LYRICA [Suspect]
     Indication: NEURALGIA
     Dosage: UNK
     Dates: start: 20080101
  2. CYCLOBENZAPRINE [Concomitant]
     Dosage: 10 MG, 3X/DAY
  3. LEVOTHYROXINE [Concomitant]
     Indication: THYROID CANCER
     Dosage: UNK
  4. PREMPRO [Concomitant]
     Dosage: UNK
  5. VESICARE [Concomitant]
     Dosage: UNK

REACTIONS (2)
  - DRUG INEFFECTIVE [None]
  - PAIN [None]
